FAERS Safety Report 12319751 (Version 1)
Quarter: 2016Q2

REPORT INFORMATION
  Report Type: Spontaneous
  Country: JP (occurrence: JP)
  Receive Date: 20160429
  Receipt Date: 20160429
  Transmission Date: 20160815
  Serious: Yes (Hospitalization)
  Sender: FDA-Public Use
  Company Number: JP-TEVA-655042ISR

PATIENT
  Age: 68 Year
  Sex: Male
  Weight: 49.5 kg

DRUGS (3)
  1. FLUOROURACIL. [Suspect]
     Active Substance: FLUOROURACIL
     Indication: METASTASES TO LIVER
     Dosage: 24 COURSES FOLLOWED BY CONTINUOUS INFUSION
     Route: 050
     Dates: start: 201003
  2. FOLINIC ACID [Suspect]
     Active Substance: LEUCOVORIN
     Indication: METASTASES TO LIVER
     Dosage: 24 COURSES
     Route: 065
     Dates: start: 201003
  3. OXALIPLATIN. [Suspect]
     Active Substance: OXALIPLATIN
     Indication: METASTASES TO LIVER
     Dosage: 24 COURSES
     Route: 065
     Dates: start: 201003

REACTIONS (2)
  - Peritonitis [Recovered/Resolved]
  - Duodenal perforation [Recovered/Resolved]
